FAERS Safety Report 6645146-2 (Version None)
Quarter: 2010Q1

REPORT INFORMATION
  Report Type: 
  Country: None (occurrence: None)
  Receive Date: 20100322
  Receipt Date: 20100308
  Transmission Date: 20100710
  Serious: Yes (Hospitalization, Disabling)
  Sender: FDA-Public Use
  Company Number: US-CELGENEUS-163-21880-10030801

PATIENT
  Sex: Male

DRUGS (21)
  1. REVLIMID [Suspect]
     Indication: MANTLE CELL LYMPHOMA
     Route: 048
     Dates: start: 20091228, end: 20100118
  2. REVLIMID [Suspect]
     Route: 048
     Dates: start: 20100126, end: 20100215
  3. PREVACID [Concomitant]
     Indication: DRUG USE FOR UNKNOWN INDICATION
     Route: 065
  4. GABAPEN [Concomitant]
     Indication: DRUG USE FOR UNKNOWN INDICATION
     Route: 048
  5. MELOXICAM [Concomitant]
     Indication: DRUG USE FOR UNKNOWN INDICATION
     Route: 048
  6. AMPHETAMINE AND DEXTROAMPHETAMINE SALTS [Concomitant]
     Route: 048
  7. PROVIGIL [Concomitant]
     Route: 048
  8. METANX [Concomitant]
     Indication: ARTHRITIS
     Route: 048
  9. TEMAZEPAM [Concomitant]
     Indication: SLEEP DISORDER
     Route: 065
  10. BENZONATATE [Concomitant]
     Indication: COUGH
     Route: 065
  11. NASACORT AQ [Concomitant]
     Indication: POSTNASAL DRIP
     Route: 045
  12. CYCLOBENZAPRINE [Concomitant]
     Route: 065
  13. HYDROCODONE BITARTRATE AND ACETAMINOPHEN [Concomitant]
     Indication: PAIN
     Dosage: 5-500
     Route: 065
  14. ONDANSETRON ODT [Concomitant]
     Indication: NAUSEA
     Route: 065
  15. PREVALITE [Concomitant]
     Indication: DRUG USE FOR UNKNOWN INDICATION
     Route: 065
  16. FENTANYL [Concomitant]
     Indication: PAIN
     Route: 062
  17. OMEPRAZOLE [Concomitant]
     Route: 048
  18. DIPHENOXYLATE HCL + ATROPINE SULFATE [Concomitant]
     Indication: DRUG USE FOR UNKNOWN INDICATION
     Route: 065
  19. MORPHINE SULFATE [Concomitant]
     Indication: PAIN
     Route: 065
  20. MORPHINE SULFATE [Concomitant]
     Route: 065
  21. PROMETHAZINE W/ CODEINE [Concomitant]
     Indication: DRUG USE FOR UNKNOWN INDICATION
     Route: 048

REACTIONS (1)
  - MYELITIS TRANSVERSE [None]
